FAERS Safety Report 23022057 (Version 5)
Quarter: 2023Q4

REPORT INFORMATION
  Report Type: Spontaneous
  Country: US (occurrence: US)
  Receive Date: 20231003
  Receipt Date: 20231115
  Transmission Date: 20240110
  Serious: No
  Sender: FDA-Public Use
  Company Number: US-PFIZER INC-PV202300153670

PATIENT
  Age: 3 Year
  Sex: Female

DRUGS (2)
  1. GENOTROPIN [Suspect]
     Active Substance: SOMATROPIN
     Indication: Short stature
     Dosage: ONCE, AT NIGHT
     Route: 058
  2. ALKINDI SPRINKLE [Concomitant]
     Active Substance: HYDROCORTISONE
     Dosage: 2.5 MG AM, 1 MG IN THE AFTERNOON AND 2 MG PM

REACTIONS (2)
  - Device breakage [Unknown]
  - Device leakage [Unknown]
